FAERS Safety Report 6402370-1 (Version None)
Quarter: 2009Q4

REPORT INFORMATION
  Report Type: 
  Country: None (occurrence: None)
  Receive Date: 20091013
  Receipt Date: 20090930
  Transmission Date: 20100525
  Serious: Yes (Death, Hospitalization)
  Sender: FDA-Public Use
  Company Number: PAR_03168_2009

PATIENT
  Sex: Female
  Weight: 53.978 kg

DRUGS (2)
  1. MEGACE ES [Suspect]
     Indication: DECREASED APPETITE
     Dosage: 1 DF QD ORAL
     Route: 048
     Dates: start: 20080101, end: 20090101
  2. MEGACE ES [Suspect]
     Indication: WEIGHT DECREASED
     Dosage: 1 DF QD ORAL
     Route: 048
     Dates: start: 20080101, end: 20090101

REACTIONS (6)
  - ASTHENIA [None]
  - CACHEXIA [None]
  - CEREBROVASCULAR ACCIDENT [None]
  - DEHYDRATION [None]
  - FAILURE TO THRIVE [None]
  - MENTAL STATUS CHANGES [None]
